FAERS Safety Report 9373089 (Version 2)
Quarter: 2013Q2

REPORT INFORMATION
  Report Type: Spontaneous
  Country: IT (occurrence: IT)
  Receive Date: 20130627
  Receipt Date: 20130628
  Transmission Date: 20140414
  Serious: Yes (Hospitalization)
  Sender: FDA-Public Use
  Company Number: IT-SANOFI-AVENTIS-2013SA062602

PATIENT
  Age: 83 Year
  Sex: Male

DRUGS (10)
  1. ZOLPIDEM TARTRATE [Suspect]
     Indication: DEPRESSION
     Route: 048
     Dates: start: 20130610, end: 20130610
  2. ZOLPIDEM TARTRATE [Suspect]
     Indication: DEPRESSION
     Route: 065
  3. XANAX [Suspect]
     Indication: DEPRESSION
     Route: 048
     Dates: start: 20130610, end: 20130610
  4. XANAX [Suspect]
     Indication: DEPRESSION
     Route: 065
  5. DEBRIDAT [Concomitant]
     Dosage: DOSE:1 UNIT(S)
     Route: 048
     Dates: start: 20130607, end: 20130610
  6. SPIRIVA [Concomitant]
  7. ALIFLUS [Concomitant]
  8. SALBUTAMOL [Concomitant]
  9. REMERON [Concomitant]
     Indication: DEPRESSION
  10. CITICOLINE [Concomitant]
     Route: 048
     Dates: start: 20130607, end: 20130610

REACTIONS (4)
  - Fall [Recovering/Resolving]
  - Intentional overdose [Unknown]
  - Injury [Recovering/Resolving]
  - Somnolence [Recovering/Resolving]
